FAERS Safety Report 7293834-X (Version None)
Quarter: 2011Q1

REPORT INFORMATION
  Report Type: 
  Country: None (occurrence: None)
  Receive Date: 20110215
  Receipt Date: 20110208
  Transmission Date: 20110831
  Serious: Yes (Other)
  Sender: FDA-Public Use
  Company Number: CH-PFIZER INC-CH-WYE-H12709209

PATIENT
  Age: 25 Year
  Sex: Female

DRUGS (8)
  1. CIPROXIN [Suspect]
     Dosage: 500 MG, 2X/DAY
     Dates: start: 20090414, end: 20090420
  2. LYRICA [Suspect]
     Indication: DEPRESSION
     Dosage: 25-50 MG PER DAY
  3. OMEPRAZOLE [Suspect]
     Dosage: UNK
  4. BUSCOPAN [Suspect]
     Dosage: 10 MG, 1X/DAY
     Dates: start: 20090101
  5. MELODEN [Suspect]
     Indication: ORAL CONTRACEPTION
     Dosage: 1 DF, 1X/DAY [GESTODENE 0.075MG ]/[ ETHINYL ESTRADIOL 0.020MG]
     Route: 048
  6. TOLPERISONE HYDROCHLORIDE [Suspect]
     Dosage: 100 MG, 1X/DAY
  7. CITALOPRAM [Suspect]
     Indication: DEPRESSION
     Dosage: 40 MG, 1X/DAY
  8. IRFEN [Suspect]
     Dosage: 600 MG, 1X/DAY

REACTIONS (2)
  - DRUG INEFFECTIVE [None]
  - UNINTENDED PREGNANCY [None]
